APPROVED DRUG PRODUCT: OFIRMEV
Active Ingredient: ACETAMINOPHEN
Strength: 1GM/100ML (10MG/ML) **Federal Register determination that product was not discontinued or withdrawn for safety or effectiveness reasons**
Dosage Form/Route: SOLUTION;INTRAVENOUS
Application: N022450 | Product #001
Applicant: MALLINCKRODT HOSP PRODUCTS IP LTD
Approved: Nov 2, 2010 | RLD: Yes | RS: No | Type: DISCN

PATENTS:
Patent 9399012 | Expires: Sep 11, 2031
Patent 9987238 | Expires: Nov 13, 2028
Patent 10383834 | Expires: Nov 13, 2028
Patent 10383834 | Expires: Nov 13, 2028
Patent 9610265 | Expires: Nov 13, 2028
Patent 9399012 | Expires: Sep 11, 2031
Patent 9610265*PED | Expires: May 13, 2029
Patent 9987238*PED | Expires: May 13, 2029
Patent 9399012*PED | Expires: Mar 11, 2032
Patent 10383834*PED | Expires: May 13, 2029